FAERS Safety Report 5990673-4 (Version None)
Quarter: 2008Q4

REPORT INFORMATION
  Report Type: 
  Country: None (occurrence: None)
  Receive Date: 20081211
  Receipt Date: 20081202
  Transmission Date: 20090506
  Serious: Yes (Other)
  Sender: FDA-Public Use
  Company Number: PHEH2008US10746

PATIENT
  Sex: Female

DRUGS (1)
  1. GENTEAL GEL (NVO) [Suspect]
     Indication: DRY EYE
     Dosage: UNK, UNK
     Route: 047

REACTIONS (3)
  - GLAUCOMA [None]
  - LACRIMAL DISORDER [None]
  - VISION BLURRED [None]
